FAERS Safety Report 7018174-5 (Version None)
Quarter: 2010Q3

REPORT INFORMATION
  Report Type: 
  Country: None (occurrence: None)
  Receive Date: 20100928
  Receipt Date: 20100920
  Transmission Date: 20110219
  Serious: Yes (Other)
  Sender: FDA-Public Use
  Company Number: BR-ROCHE-728607

PATIENT
  Sex: Female

DRUGS (1)
  1. ROACUTAN [Suspect]
     Indication: ACNE
     Route: 048
     Dates: start: 20091103

REACTIONS (9)
  - ABDOMINAL PAIN UPPER [None]
  - ACNE [None]
  - BLOOD GLUCOSE ABNORMAL [None]
  - CANDIDIASIS [None]
  - DEPRESSION [None]
  - DIZZINESS [None]
  - IMMUNODEFICIENCY [None]
  - NAUSEA [None]
  - WEIGHT INCREASED [None]
